FAERS Safety Report 20779334 (Version 2)
Quarter: 2022Q2

REPORT INFORMATION
  Report Type: Report from Study
  Country: EG (occurrence: EG)
  Receive Date: 20220503
  Receipt Date: 20220506
  Transmission Date: 20220721
  Serious: Yes (Other)
  Sender: FDA-Public Use
  Company Number: EG-NOVARTISPH-NVSC2022EG100771

PATIENT
  Sex: Male

DRUGS (2)
  1. GILENYA [Suspect]
     Active Substance: FINGOLIMOD HYDROCHLORIDE
     Indication: Multiple sclerosis
     Dosage: 0.5 MG, QD
     Route: 065
     Dates: start: 2019
  2. URSODIOL [Concomitant]
     Active Substance: URSODIOL
     Indication: Hepatic enzyme abnormal
     Dosage: UNK UNK, QD
     Route: 065
     Dates: start: 2020

REACTIONS (4)
  - Blood cholesterol increased [Recovered/Resolved]
  - Lipids increased [Recovered/Resolved]
  - Hypertension [Not Recovered/Not Resolved]
  - Hepatic enzyme increased [Unknown]

NARRATIVE: CASE EVENT DATE: 20190101
